FAERS Safety Report 23347642 (Version 1)
Quarter: 2023Q4

REPORT INFORMATION
  Report Type: Spontaneous
  Country: FR (occurrence: None)
  Receive Date: 20231228
  Receipt Date: 20231228
  Transmission Date: 20240110
  Serious: Yes (Other)
  Sender: FDA-Public Use
  Company Number: 2023A292441

PATIENT
  Age: 53 Year
  Sex: Male

DRUGS (3)
  1. OSIMERTINIB [Suspect]
     Active Substance: OSIMERTINIB
     Route: 048
  2. PEMETREXED [Concomitant]
     Active Substance: PEMETREXED
  3. BEVACIZUMAB [Concomitant]
     Active Substance: BEVACIZUMAB

REACTIONS (2)
  - Liver injury [Unknown]
  - Therapy partial responder [Unknown]
